FAERS Safety Report 4350808-6 (Version None)
Quarter: 2004Q2

REPORT INFORMATION
  Report Type: 
  Country: None (occurrence: None)
  Receive Date: 20040427
  Receipt Date: 20040416
  Transmission Date: 20050107
  Serious: Yes (Hospitalization)
  Sender: FDA-Public Use
  Company Number: 2004204665US

PATIENT
  Age: 50 Year
  Sex: Female

DRUGS (16)
  1. ELLENCE [Suspect]
     Indication: BREAST CANCER STAGE II
     Dosage: 135 MG/M2, Q21 DAYS, CYCLIC, IV
     Route: 042
     Dates: start: 20031205
  2. COMPARATOR-DOCETAXEL(DOCETAXEL) INJECTION [Suspect]
     Indication: BREAST CANCER STAGE II
     Dosage: 135 MG/M2, Q21, CYCLIC, IV
     Route: 042
     Dates: start: 20031205
  3. CYCLOPHOSPHAMIDE [Suspect]
     Indication: BREAST CANCER STAGE II
     Dosage: 900 MG/M2, Q21 DAYS, CYCLIC, IV
     Route: 042
     Dates: start: 20031205
  4. COMPARATOR-PEGFILGRASTIM (PEGFILGRASTIM) INJECTION [Suspect]
     Indication: BREAST CANCER STAGE II
     Dosage: 6 MG, Q21 DAYS, CYCLIC, SUBCUTANEOUS
     Route: 058
  5. ATENOLOL [Concomitant]
  6. VALTREX [Concomitant]
  7. NEXIUM [Concomitant]
  8. ALLEGRA [Concomitant]
  9. LEVOXYL [Concomitant]
  10. MULTIVITAMINS (PANTHENOL, RETINOL, ERGOCALCIFEROL) [Concomitant]
  11. AMBIEN [Concomitant]
  12. KYTRIL [Concomitant]
  13. ZOFRAN [Concomitant]
  14. IMODIUM A-D [Concomitant]
  15. DEXAMETHASONE [Concomitant]
  16. LORAZEPAM [Concomitant]

REACTIONS (12)
  - CHILLS [None]
  - DEHYDRATION [None]
  - DIARRHOEA [None]
  - FEBRILE NEUTROPENIA [None]
  - FEELING COLD [None]
  - HAEMOGLOBIN DECREASED [None]
  - LETHARGY [None]
  - LEUKOCYTOSIS [None]
  - MARKEDLY REDUCED DIETARY INTAKE [None]
  - NAUSEA [None]
  - PLATELET COUNT DECREASED [None]
  - VOMITING [None]
